FAERS Safety Report 6058343-4 (Version None)
Quarter: 2009Q1

REPORT INFORMATION
  Report Type: 
  Country: None (occurrence: None)
  Receive Date: 20090127
  Receipt Date: 20090116
  Transmission Date: 20090719
  Serious: Yes (Death, Other)
  Sender: FDA-Public Use
  Company Number: GXKR2009GB00883

PATIENT
  Age: 38 Year
  Sex: Female

DRUGS (4)
  1. GEMCITABINE [Suspect]
     Indication: LUNG CANCER METASTATIC
     Dosage: 1000 MG/M2, DAYS 1 AND 8
  2. GEMCITABINE [Suspect]
     Indication: METASTASES TO LIVER
     Dosage: 1000 MG/M2, DAYS 1 AND 8
  3. CARBOPLATIN [Suspect]
     Indication: LUNG CANCER METASTATIC
     Dosage: DAY 1
  4. CARBOPLATIN [Suspect]
     Indication: METASTASES TO LIVER
     Dosage: DAY 1

REACTIONS (6)
  - CAESAREAN SECTION [None]
  - DISEASE PROGRESSION [None]
  - DRUG EXPOSURE DURING PREGNANCY [None]
  - DRUG INEFFECTIVE [None]
  - OVARIAN CYST [None]
  - PULMONARY EMBOLISM [None]
